FAERS Safety Report 5188777-1 (Version None)
Quarter: 2006Q4

REPORT INFORMATION
  Report Type: 
  Country: None (occurrence: None)
  Receive Date: 20061221
  Receipt Date: 20061215
  Transmission Date: 20070319
  Serious: Yes (Other)
  Sender: FDA-Public Use
  Company Number: JP-ABBOTT-06P-087-0353455-00

PATIENT
  Age: 20 Year
  Sex: Male
  Weight: 51 kg

DRUGS (5)
  1. CLARITHROMYCIN [Suspect]
     Indication: SINUSITIS
     Route: 048
     Dates: start: 20061102, end: 20061114
  2. LORATADINE [Suspect]
     Indication: RHINITIS ALLERGIC
     Route: 048
     Dates: start: 20061102, end: 20061114
  3. L-CARBOCISTEINE [Concomitant]
     Indication: SINUSITIS
     Route: 048
     Dates: start: 20061102, end: 20061114
  4. SERRAPEPTASE [Concomitant]
     Indication: SINUSITIS
     Route: 048
     Dates: start: 20061102, end: 20061114
  5. FLUTICASONE PROPIONATE [Concomitant]
     Indication: RHINITIS ALLERGIC
     Route: 045
     Dates: start: 20061102, end: 20061114

REACTIONS (13)
  - ASTHENIA [None]
  - CHILLS [None]
  - DECREASED APPETITE [None]
  - DIZZINESS [None]
  - FALL [None]
  - GAIT DISTURBANCE [None]
  - GRIP STRENGTH DECREASED [None]
  - HEADACHE [None]
  - HYPOTENSION [None]
  - MALAISE [None]
  - MYALGIA [None]
  - NAUSEA [None]
  - RHABDOMYOLYSIS [None]
